FAERS Safety Report 9944937 (Version 1)
Quarter: 2014Q1

REPORT INFORMATION
  Report Type: Report from Study
  Country: US (occurrence: US)
  Receive Date: 20140303
  Receipt Date: 20140303
  Transmission Date: 20141002
  Serious: No
  Sender: FDA-Public Use
  Company Number: US-ABBVIE-13P-163-1054142-00

PATIENT
  Age: 77 Year
  Sex: Female

DRUGS (8)
  1. HUMIRA [Suspect]
     Indication: CROHN^S DISEASE
     Dates: start: 201210
  2. BENICAR [Concomitant]
     Indication: HYPERTENSION
  3. ONE A DAY ESSENTIAL [Concomitant]
     Indication: PRODUCT USED FOR UNKNOWN INDICATION
  4. FOLIC ACID [Concomitant]
     Indication: PRODUCT USED FOR UNKNOWN INDICATION
  5. B12 [Concomitant]
     Indication: PRODUCT USED FOR UNKNOWN INDICATION
  6. CALTRATE D PLUS MINERALS [Concomitant]
     Indication: PRODUCT USED FOR UNKNOWN INDICATION
  7. FISH OIL [Concomitant]
     Indication: PRODUCT USED FOR UNKNOWN INDICATION
  8. TYLENOL [Concomitant]
     Indication: HEADACHE

REACTIONS (2)
  - Breast enlargement [Unknown]
  - Injection site erythema [Recovering/Resolving]
